FAERS Safety Report 13647349 (Version 1)
Quarter: 2017Q2

REPORT INFORMATION
  Report Type: Spontaneous
  Country: US (occurrence: US)
  Receive Date: 20170613
  Receipt Date: 20170613
  Transmission Date: 20170830
  Serious: Yes (Hospitalization)
  Sender: FDA-Public Use
  Company Number: None

PATIENT
  Sex: Female
  Weight: 70.7 kg

DRUGS (17)
  1. DAPSONE. [Concomitant]
     Active Substance: DAPSONE
  2. FAMOTIDINE. [Concomitant]
     Active Substance: FAMOTIDINE
  3. DOXEPIN [Concomitant]
     Active Substance: DOXEPIN
  4. HYDROCODONE-ACETAMINOPHEN [Concomitant]
     Active Substance: ACETAMINOPHEN\HYDROCODONE
  5. AMBIEN [Concomitant]
     Active Substance: ZOLPIDEM TARTRATE
  6. SOFOSBUVIR/VALPATAVIR 400-100MG GILEAD [Suspect]
     Active Substance: SOFOSBUVIR\VELPATASVIR
     Indication: HEPATITIS C
     Route: 048
     Dates: start: 20160831, end: 20161123
  7. CHOLECALCIFEROL [Concomitant]
     Active Substance: CHOLECALCIFEROL
  8. SOFOSBUVIR-VELPATASVIR [Concomitant]
     Active Substance: SOFOSBUVIR\VELPATASVIR
  9. ALPRAZOLAM. [Concomitant]
     Active Substance: ALPRAZOLAM
  10. ENTECAVIR. [Concomitant]
     Active Substance: ENTECAVIR
  11. CALCIUM CARBONATE. [Concomitant]
     Active Substance: CALCIUM CARBONATE
  12. FUROSEMIDE. [Concomitant]
     Active Substance: FUROSEMIDE
  13. POTASSIUM CHLORIDE. [Concomitant]
     Active Substance: POTASSIUM CHLORIDE
  14. VORTIOXETINE [Concomitant]
     Active Substance: VORTIOXETINE
  15. LISINOPRIL. [Concomitant]
     Active Substance: LISINOPRIL
  16. PREDNISONE. [Concomitant]
     Active Substance: PREDNISONE
  17. PREGABALIN. [Concomitant]
     Active Substance: PREGABALIN

REACTIONS (4)
  - Cryoglobulinaemia [None]
  - Acute kidney injury [None]
  - Hypertensive crisis [None]
  - Cardiorenal syndrome [None]

NARRATIVE: CASE EVENT DATE: 20160824
